FAERS Safety Report 5959212-8 (Version None)
Quarter: 2008Q4

REPORT INFORMATION
  Report Type: 
  Country: None (occurrence: None)
  Receive Date: 20081120
  Receipt Date: 20080703
  Transmission Date: 20090506
  Serious: No
  Sender: FDA-Public Use
  Company Number: A0736029A

PATIENT
  Age: 64 Year
  Sex: Female

DRUGS (3)
  1. WELLBUTRIN SR [Suspect]
     Dosage: 100MG TWICE PER DAY
     Route: 048
     Dates: start: 20060601, end: 20060901
  2. IMIPRAMINE [Concomitant]
  3. ATIVAN [Concomitant]

REACTIONS (3)
  - ELEVATED MOOD [None]
  - HYPOREFLEXIA [None]
  - LOGORRHOEA [None]
